FAERS Safety Report 13375443 (Version 2)
Quarter: 2017Q1

REPORT INFORMATION
  Report Type: Report from Study
  Country: GB (occurrence: GB)
  Receive Date: 20170327
  Receipt Date: 20170331
  Transmission Date: 20170429
  Serious: Yes (Other)
  Sender: FDA-Public Use
  Company Number: GB-AMGEN-GBRSL2017046108

PATIENT
  Age: 85 Year
  Sex: Male

DRUGS (1)
  1. ARANESP [Suspect]
     Active Substance: DARBEPOETIN ALFA
     Indication: PRODUCT USED FOR UNKNOWN INDICATION
     Dosage: 40 MUG, UNK
     Route: 065

REACTIONS (5)
  - Feeling abnormal [Unknown]
  - Gastrointestinal disorder [Unknown]
  - Internal haemorrhage [Unknown]
  - Mineral supplementation [Unknown]
  - Transfusion [Unknown]

NARRATIVE: CASE EVENT DATE: 20170323
